FAERS Safety Report 7691572-2 (Version None)
Quarter: 2011Q3

REPORT INFORMATION
  Report Type: 
  Country: None (occurrence: None)
  Receive Date: 20110817
  Receipt Date: 20110817
  Transmission Date: 20111222
  Serious: Yes (Hospitalization)
  Sender: FDA-Public Use
  Company Number: None

PATIENT
  Sex: Female
  Weight: 59.4 kg

DRUGS (2)
  1. CYCLOPHOSPHAMIDE [Suspect]
     Dosage: 4000 MG
  2. DOXORUBICIN HYDROCHLORIDE [Suspect]
     Dosage: 400 MG

REACTIONS (1)
  - FEBRILE NEUTROPENIA [None]
